FAERS Safety Report 14559094 (Version 7)
Quarter: 2019Q3

REPORT INFORMATION
  Report Type: Report from Study
  Country: US (occurrence: US)
  Receive Date: 20180221
  Receipt Date: 20190821
  Transmission Date: 20191004
  Serious: Yes (Death, Hospitalization, Other)
  Sender: FDA-Public Use
  Company Number: US-ACTELION-A-NJ2016-143670

PATIENT
  Age: 53 Year
  Sex: Female
  Weight: 161 kg

DRUGS (17)
  1. VELETRI [Suspect]
     Active Substance: EPOPROSTENOL
     Dosage: 47 NG/KG, PER MIN
     Route: 042
  2. ACETAMINOPHEN W/BUTALBITAL/CAFFEINE/CODEINE P [Concomitant]
     Active Substance: ACETAMINOPHEN\BUTALBITAL\CAFFEINE\CODEINE PHOSPHATE
     Indication: MIGRAINE
     Dosage: 1 CAPSULE Q4HRS, PRN
     Route: 048
     Dates: start: 20170413
  3. ZOCOR [Concomitant]
     Active Substance: SIMVASTATIN
     Dosage: 40 MG, QPM
     Route: 048
     Dates: start: 20170312
  4. VELETRI [Suspect]
     Active Substance: EPOPROSTENOL
     Dosage: 46 NG/KG, PER MIN
     Route: 042
     Dates: start: 20140320
  5. VELETRI [Suspect]
     Active Substance: EPOPROSTENOL
     Indication: PULMONARY ARTERIAL HYPERTENSION
     Dosage: 50 NG/KG, PER MIN
     Route: 042
  6. PROZAC [Concomitant]
     Active Substance: FLUOXETINE HYDROCHLORIDE
     Dosage: 10 MG, QD
     Route: 048
     Dates: start: 20170331
  7. ZAROXOLYN [Concomitant]
     Active Substance: METOLAZONE
     Dosage: 2.5 MG, BID
     Route: 048
     Dates: start: 20170816
  8. ADCIRCA [Concomitant]
     Active Substance: TADALAFIL
     Dosage: 40 MG, QPM
     Route: 048
     Dates: start: 20150921
  9. XARELTO [Concomitant]
     Active Substance: RIVAROXABAN
  10. MIRAPEX [Concomitant]
     Active Substance: PRAMIPEXOLE DIHYDROCHLORIDE
     Dosage: 1.5-2 TABLETS QPM
     Route: 048
     Dates: start: 20170207
  11. PRED FORTE [Concomitant]
     Active Substance: PREDNISOLONE ACETATE
     Dosage: 1%, 1 GTT BOTH EYES, BID
     Route: 047
     Dates: start: 20170816
  12. LASIX [Concomitant]
     Active Substance: FUROSEMIDE
     Dosage: 80 MG, BID
     Route: 048
     Dates: start: 20170816
  13. K-DUR [Concomitant]
     Active Substance: POTASSIUM CHLORIDE
     Dosage: 40 MEQ, QD
     Route: 048
     Dates: start: 20170816
  14. NEURONTIN [Concomitant]
     Active Substance: GABAPENTIN
     Dosage: 800 MG, BID
     Route: 048
     Dates: start: 20170221
  15. IMODIUM [Concomitant]
     Active Substance: LOPERAMIDE HYDROCHLORIDE
     Indication: DIARRHOEA
     Dosage: 2 MG, PRN
     Route: 048
  16. REMERON [Concomitant]
     Active Substance: MIRTAZAPINE
     Dosage: 15 MG, QPM
     Route: 048
  17. K-DUR [Concomitant]
     Active Substance: POTASSIUM CHLORIDE
     Dosage: 40 MEQ, BID
     Route: 048

REACTIONS (33)
  - Palpitations [Recovered/Resolved]
  - Blood potassium decreased [Unknown]
  - Flushing [Unknown]
  - Weight increased [Unknown]
  - Heart rate increased [Recovered/Resolved]
  - Cardiomegaly [Unknown]
  - Blood glucose increased [Unknown]
  - Nasal congestion [Unknown]
  - Diastolic dysfunction [Unknown]
  - Limb injury [Unknown]
  - Pulmonary oedema [Unknown]
  - Acute kidney injury [Unknown]
  - Pain in jaw [Unknown]
  - Diarrhoea [Unknown]
  - Fluid retention [Unknown]
  - Fall [Unknown]
  - Death [Fatal]
  - Dyspnoea exertional [Unknown]
  - Malaise [Unknown]
  - Cardiac disorder [Unknown]
  - Device leakage [Unknown]
  - Platelet count decreased [Unknown]
  - Wound [Not Recovered/Not Resolved]
  - Dyspnoea [Unknown]
  - Arrhythmia [Unknown]
  - Headache [Unknown]
  - Upper respiratory tract infection [Recovered/Resolved]
  - Weight decreased [Unknown]
  - Alopecia [Unknown]
  - Device damage [Recovered/Resolved]
  - Atrial flutter [Recovered/Resolved]
  - Contusion [Not Recovered/Not Resolved]
  - Decreased appetite [Unknown]

NARRATIVE: CASE EVENT DATE: 20150508
